FAERS Safety Report 7538777-9 (Version None)
Quarter: 2011Q2

REPORT INFORMATION
  Report Type: 
  Country: None (occurrence: None)
  Receive Date: 20110610
  Receipt Date: 20110121
  Transmission Date: 20111010
  Serious: Yes (Hospitalization, Other)
  Sender: FDA-Public Use
  Company Number: US-BAYER-201037411NA

PATIENT
  Age: 26 Year
  Sex: Female
  Weight: 112 kg

DRUGS (4)
  1. YASMIN [Suspect]
     Indication: PRODUCT USED FOR UNKNOWN INDICATION
     Dosage: UNK UNK, QD
     Route: 048
     Dates: start: 20060911, end: 20070420
  2. ANTIBIOTICS [Concomitant]
     Indication: PRODUCT USED FOR UNKNOWN INDICATION
  3. MOTRIN [Concomitant]
     Indication: DYSMENORRHOEA
     Dosage: 800 MG, QID
     Route: 048
     Dates: start: 20061003
  4. ASCORBIC ACID [Concomitant]
     Indication: PRODUCT USED FOR UNKNOWN INDICATION

REACTIONS (17)
  - ARTHRALGIA [None]
  - ABDOMINAL DISTENSION [None]
  - INSOMNIA [None]
  - GALLBLADDER INJURY [None]
  - DEEP VEIN THROMBOSIS [None]
  - SCAR [None]
  - CONSTIPATION [None]
  - CHOLESTEROSIS [None]
  - CHOLELITHIASIS [None]
  - CHOLECYSTITIS CHRONIC [None]
  - EMOTIONAL DISTRESS [None]
  - PAIN [None]
  - PULMONARY EMBOLISM [None]
  - CHOLECYSTITIS ACUTE [None]
  - CERVICAL DYSPLASIA [None]
  - PAPILLOMA VIRAL INFECTION [None]
  - COLITIS [None]
